FAERS Safety Report 9175024 (Version 1)
Quarter: 2013Q1

REPORT INFORMATION
  Report Type: Spontaneous
  Country: HR (occurrence: HR)
  Receive Date: 20130320
  Receipt Date: 20130320
  Transmission Date: 20140127
  Serious: Yes (Other)
  Sender: FDA-Public Use
  Company Number: HR-GLAXOSMITHKLINE-B0875660A

PATIENT
  Age: 3 Year
  Sex: Female

DRUGS (2)
  1. ACYCLOVIR [Suspect]
     Indication: ORAL HERPES
     Route: 061
     Dates: start: 20130205
  2. AMOXICILLIN TRIHYDRATE [Suspect]
     Indication: EAR INFECTION
     Route: 048
     Dates: start: 20130128, end: 20130205

REACTIONS (3)
  - Rash generalised [Unknown]
  - Localised oedema [Unknown]
  - Local swelling [Unknown]
